FAERS Safety Report 24030521 (Version 1)
Quarter: 2024Q2

REPORT INFORMATION
  Report Type: Spontaneous
  Country: IE (occurrence: IE)
  Receive Date: 20240628
  Receipt Date: 20240628
  Transmission Date: 20240716
  Serious: Yes (Life-Threatening, Disabling, Other)
  Sender: FDA-Public Use
  Company Number: None

PATIENT
  Age: 45 Year
  Sex: Female

DRUGS (1)
  1. TAMOXIFEN [Suspect]
     Active Substance: TAMOXIFEN
     Indication: Product used for unknown indication
     Dosage: 20 MILLIGRAM
     Route: 048
     Dates: start: 20210425, end: 20230404

REACTIONS (20)
  - Anhedonia [Unknown]
  - Libido decreased [Unknown]
  - Suicidal ideation [Unknown]
  - Apathy [Unknown]
  - Toothache [Unknown]
  - Bone pain [Unknown]
  - Brain fog [Unknown]
  - Breast pain [Unknown]
  - Arthralgia [Unknown]
  - Musculoskeletal stiffness [Unknown]
  - Abdominal discomfort [Unknown]
  - Impaired work ability [Unknown]
  - Pain in jaw [Unknown]
  - Mental impairment [Unknown]
  - Ear pain [Unknown]
  - Peripheral coldness [Unknown]
  - Anxiety [Unknown]
  - Depressed mood [Unknown]
  - Myalgia [Unknown]
  - Fatigue [Unknown]
